FAERS Safety Report 6260706-9 (Version None)
Quarter: 2009Q3

REPORT INFORMATION
  Report Type: 
  Country: None (occurrence: None)
  Receive Date: 20090706
  Receipt Date: 20090623
  Transmission Date: 20100115
  Serious: Yes (Congenital Anomaly)
  Sender: FDA-Public Use
  Company Number: B0581689A

PATIENT
  Sex: Male

DRUGS (7)
  1. CIPROFLOXACIN [Suspect]
     Indication: TUBERCULOSIS
     Dosage: TRANSPLACENTARY
  2. AMOXICILLIN AND CLAVULANATE POTASSIUM [Suspect]
     Indication: TUBERCULOSIS
     Dosage: TRANSPLACENTARY
  3. PYRAZINAMIDE [Suspect]
     Indication: TUBERCULOSIS
     Dosage: TRANSPLACENTARY
     Route: 064
  4. CAPREOMYCIN [Suspect]
     Indication: TUBERCULOSIS
     Dosage: TRANSPLACENTARY
     Route: 064
  5. ETHIONAMIDE (ETHIONAMIDE) IFORMULATION UNKNOWN) [Suspect]
     Indication: TUBERCULOSIS
     Dosage: TRANSPLACENTARY
     Route: 064
  6. CYCLOSERINE [Suspect]
     Indication: TUBERCULOSIS
     Dosage: TRANSPLACENTARY
     Route: 064
  7. AMINOSALICYLIC ACID (AMINOSALICYLIC ACID) (FORMULATION UNKNOWN) [Suspect]
     Indication: TUBERCULOSIS
     Dosage: TRANSPLACENTARY
     Route: 064

REACTIONS (2)
  - CONGENITAL GENITAL MALFORMATION [None]
  - MATERNAL DRUGS AFFECTING FOETUS [None]
